FAERS Safety Report 7524140-3 (Version None)
Quarter: 2011Q2

REPORT INFORMATION
  Report Type: 
  Country: None (occurrence: None)
  Receive Date: 20110606
  Receipt Date: 20110527
  Transmission Date: 20111010
  Serious: No
  Sender: FDA-Public Use
  Company Number: US-BIOGENIDEC-2010BI016575

PATIENT
  Sex: Female

DRUGS (1)
  1. TYSABRI [Suspect]
     Indication: MULTIPLE SCLEROSIS
     Route: 042
     Dates: start: 20081119

REACTIONS (11)
  - NUCLEAR MAGNETIC RESONANCE IMAGING ABNORMAL [None]
  - TOOTH EXTRACTION [None]
  - NEURITIS [None]
  - MALAISE [None]
  - HYPOAESTHESIA [None]
  - AMNESIA [None]
  - TREMOR [None]
  - PARAESTHESIA [None]
  - NECK PAIN [None]
  - MYALGIA [None]
  - HEADACHE [None]
